FAERS Safety Report 17169435 (Version 1)
Quarter: 2019Q4

REPORT INFORMATION
  Report Type: Spontaneous
  Country: US (occurrence: US)
  Receive Date: 20191218
  Receipt Date: 20191218
  Transmission Date: 20200122
  Serious: Yes (Other)
  Sender: FDA-Public Use
  Company Number: US-PFIZER INC-2019535903

PATIENT
  Age: 51 Year
  Sex: Female
  Weight: 82.1 kg

DRUGS (3)
  1. IBUPROFEN. [Suspect]
     Active Substance: IBUPROFEN
     Dosage: UNK UNK, DAILY (10 PILLS DAILY)
  2. REMODULIN [Suspect]
     Active Substance: TREPROSTINIL
     Indication: PULMONARY ARTERIAL HYPERTENSION
     Dosage: 0.1 UG/KG, UNK
     Route: 058
     Dates: start: 20190624
  3. LASIX [Concomitant]
     Active Substance: FUROSEMIDE
     Dosage: UNK

REACTIONS (5)
  - Haematochezia [Unknown]
  - Intentional product misuse [Unknown]
  - Headache [Unknown]
  - Constipation [Unknown]
  - Medication overuse headache [Unknown]

NARRATIVE: CASE EVENT DATE: 2019
